FAERS Safety Report 6742309-2 (Version None)
Quarter: 2010Q2

REPORT INFORMATION
  Report Type: 
  Country: None (occurrence: None)
  Receive Date: 20100524
  Receipt Date: 20100519
  Transmission Date: 20101027
  Serious: Yes (Death, Hospitalization, Other)
  Sender: FDA-Public Use
  Company Number: 2010SP018895

PATIENT
  Age: 46 Year
  Sex: Male

DRUGS (13)
  1. DEXAMETHASONE [Suspect]
     Indication: FATIGUE
     Dosage: 2 MG; ; PO, 4 MG; ; PO
     Route: 048
  2. DEXAMETHASONE [Suspect]
     Indication: ROUTINE HEALTH MAINTENANCE
     Dosage: 2 MG; ; PO, 4 MG; ; PO
     Route: 048
  3. CARBOPLATIN [Suspect]
     Indication: METASTATIC MALIGNANT MELANOMA
  4. MOVICOL (MOVICOL /01749801/) [Suspect]
     Indication: CONSTIPATION
     Dosage: 6 DF;
  5. NAPROXEN [Suspect]
     Indication: ANALGESIC THERAPY
     Dosage: 500 MG; BID;
  6. FLUDROCORTISONE ACETATE [Suspect]
     Indication: HYPONATRAEMIA
  7. HYDROCORTISONE [Suspect]
     Indication: DRUG USE FOR UNKNOWN INDICATION
     Dosage: ; IV
     Route: 042
  8. DIAMORPHINE [Concomitant]
  9. KETAMINE [Concomitant]
  10. MORPHINE SULFATE [Concomitant]
  11. WARFARIN SODIUM [Concomitant]
  12. MIDAZOLAM HCL [Concomitant]
  13. HYDROCORTISONE [Concomitant]

REACTIONS (27)
  - ABDOMINAL PAIN [None]
  - ADRENAL INSUFFICIENCY [None]
  - ADRENAL SUPPRESSION [None]
  - AGGRESSION [None]
  - AGITATION [None]
  - ASTHENIA [None]
  - BACK PAIN [None]
  - CONDITION AGGRAVATED [None]
  - CONFUSIONAL STATE [None]
  - CONSTIPATION [None]
  - GENERAL PHYSICAL HEALTH DETERIORATION [None]
  - HAEMOGLOBIN DECREASED [None]
  - HAEMORRHAGE [None]
  - HYPERHIDROSIS [None]
  - HYPERKALAEMIA [None]
  - HYPONATRAEMIA [None]
  - HYPOTENSION [None]
  - LETHARGY [None]
  - MALIGNANT MELANOMA [None]
  - MALIGNANT NEOPLASM PROGRESSION [None]
  - MASS [None]
  - METASTASES TO ADRENALS [None]
  - METASTASES TO LIVER [None]
  - METASTASES TO SKIN [None]
  - NEPHROPATHY TOXIC [None]
  - RETROPERITONEAL LYMPHADENOPATHY [None]
  - TACHYCARDIA [None]
